FAERS Safety Report 4642697-7 (Version None)
Quarter: 2005Q2

REPORT INFORMATION
  Report Type: 
  Country: None (occurrence: None)
  Receive Date: 20050420
  Receipt Date: 20050401
  Transmission Date: 20051028
  Serious: Yes (Hospitalization)
  Sender: FDA-Public Use
  Company Number: 800280

PATIENT
  Age: 85 Year
  Sex: Female
  Weight: 40 kg

DRUGS (7)
  1. PHYSIOSOL IN PLASTIC CONTAINER [Suspect]
     Indication: PERITONEAL DIALYSIS
     Dosage: INTRAPERITONEAL
     Route: 033
     Dates: start: 20040921
  2. NUTRINEAL [Suspect]
     Indication: PERITONEAL DIALYSIS
     Dosage: INTRAPERITONEAL
     Route: 033
     Dates: start: 20040921
  3. HOMECHOICE [Concomitant]
  4. PRAVASTATIN [Concomitant]
  5. ATENOLOL [Concomitant]
  6. LASILIX [Concomitant]
  7. UNALFA [Concomitant]

REACTIONS (2)
  - PERITONEAL INFECTION [None]
  - PSEUDOMONAS INFECTION [None]
